FAERS Safety Report 23069131 (Version 1)
Quarter: 2023Q4

REPORT INFORMATION
  Report Type: Spontaneous
  Country: US (occurrence: None)
  Receive Date: 20231015
  Receipt Date: 20231015
  Transmission Date: 20240110
  Serious: Yes (Disabling)
  Sender: FDA-Public Use
  Company Number: None

PATIENT
  Age: 55 Year
  Sex: Female
  Weight: 117 kg

DRUGS (6)
  1. CLONAZEPAM [Suspect]
     Active Substance: CLONAZEPAM
     Indication: Dizziness
     Dosage: OTHER QUANTITY : 3 TABLET(S);?FREQUENCY : EVERY 6 HOURS;?
     Route: 048
  2. CLONAZEPAM [Suspect]
     Active Substance: CLONAZEPAM
     Indication: Nausea
  3. Sertreline [Concomitant]
  4. ROPINIROLE [Concomitant]
     Active Substance: ROPINIROLE
  5. CLONAZEPAM [Concomitant]
     Active Substance: CLONAZEPAM
  6. VITAMINS [Concomitant]
     Active Substance: VITAMINS

REACTIONS (5)
  - Withdrawal syndrome [None]
  - Drug dependence [None]
  - Quality of life decreased [None]
  - Suicidal ideation [None]
  - Bedridden [None]

NARRATIVE: CASE EVENT DATE: 20220214
